FAERS Safety Report 7723347-X (Version None)
Quarter: 2011Q3

REPORT INFORMATION
  Report Type: 
  Country: None (occurrence: None)
  Receive Date: 20110826
  Receipt Date: 20110812
  Transmission Date: 20111222
  Serious: Yes (Disabling)
  Sender: FDA-Public Use
  Company Number: 1000023065

PATIENT
  Age: 47 Year
  Sex: Male
  Weight: 52.5 kg

DRUGS (1)
  1. ROFLUMILAST (ROFLUMILAST) [Suspect]
     Dosage: 500 MCG (500 MCG,ONCE),ORAL
     Route: 048
     Dates: start: 20110528, end: 20110528

REACTIONS (3)
  - DEAFNESS UNILATERAL [None]
  - TINNITUS [None]
  - DEAFNESS NEUROSENSORY [None]
